FAERS Safety Report 15338306 (Version 4)
Quarter: 2019Q1

REPORT INFORMATION
  Report Type: Report from Study
  Country: CA (occurrence: CA)
  Receive Date: 20180831
  Receipt Date: 20190208
  Transmission Date: 20190417
  Serious: Yes (Hospitalization)
  Sender: FDA-Public Use
  Company Number: CA-JNJFOC-20180827409

PATIENT
  Sex: Male
  Weight: 80.29 kg

DRUGS (2)
  1. STELARA [Suspect]
     Active Substance: USTEKINUMAB
     Indication: CROHN^S DISEASE
     Dosage: STRENGTH = 90 MG
     Route: 058
     Dates: start: 20170120
  2. STELARA [Suspect]
     Active Substance: USTEKINUMAB
     Indication: CROHN^S DISEASE
     Route: 058

REACTIONS (7)
  - Drug withdrawal syndrome [Recovering/Resolving]
  - Urinary tract infection [Unknown]
  - Cholelithiasis [Recovered/Resolved]
  - Escherichia test positive [Recovering/Resolving]
  - Nausea [Unknown]
  - Abdominal pain [Not Recovered/Not Resolved]
  - Cholecystitis infective [Recovering/Resolving]

NARRATIVE: CASE EVENT DATE: 2018
